FAERS Safety Report 10745783 (Version 1)
Quarter: 2015Q1

REPORT INFORMATION
  Report Type: Spontaneous
  Country: US (occurrence: None)
  Receive Date: 20150127
  Receipt Date: 20150127
  Transmission Date: 20150721
  Serious: No
  Sender: FDA-Public Use
  Company Number: None

PATIENT
  Age: 68 Year
  Sex: Male
  Weight: 82.1 kg

DRUGS (1)
  1. JUBLIA [Suspect]
     Active Substance: EFINACONAZOLE
     Indication: ONYCHOMYCOSIS
     Dosage: ONE DROP PER TOE
     Route: 061
     Dates: start: 20140911, end: 20150122

REACTIONS (4)
  - Local swelling [None]
  - Skin exfoliation [None]
  - Application site haemorrhage [None]
  - Application site pain [None]

NARRATIVE: CASE EVENT DATE: 20150122
